FAERS Safety Report 6835671-3 (Version None)
Quarter: 2010Q3

REPORT INFORMATION
  Report Type: 
  Country: None (occurrence: None)
  Receive Date: 20100713
  Receipt Date: 20100701
  Transmission Date: 20110219
  Serious: Yes (Disabling, Other)
  Sender: FDA-Public Use
  Company Number: GB-PFIZER INC-2010082081

PATIENT
  Age: 50 Year
  Sex: Female
  Weight: 82.73 kg

DRUGS (3)
  1. CHAMPIX [Suspect]
     Indication: SMOKING CESSATION THERAPY
     Dosage: 1 MG, 2X/DAY
     Route: 048
     Dates: start: 20100424, end: 20100506
  2. CHAMPIX [Suspect]
     Dosage: 0.5 MG, 2X/DAY
  3. DIAZEPAM [Concomitant]
     Indication: ANXIETY
     Dosage: 2 MG, UNK
     Route: 048

REACTIONS (2)
  - IMPAIRED DRIVING ABILITY [None]
  - VERTIGO [None]
